FAERS Safety Report 8815572 (Version 1)
Quarter: 2012Q4

REPORT INFORMATION
  Report Type: 
  Country: FR (occurrence: FR)
  Receive Date: 20120928
  Receipt Date: 20120928
  Transmission Date: 20130627
  Serious: Yes (Death)
  Sender: FDA-Public Use
  Company Number: FR-JNJFOC-20120811382

PATIENT
  Age: 81 Year
  Sex: Male

DRUGS (5)
  1. REMICADE [Suspect]
     Indication: RHEUMATOID ARTHRITIS
     Route: 042
     Dates: start: 20120516
  2. REMICADE [Suspect]
     Indication: RHEUMATOID ARTHRITIS
     Route: 042
     Dates: start: 201012
  3. LEXOMIL [Concomitant]
     Route: 048
  4. VALDOXAN (AGOMELATINE) [Concomitant]
     Dosage: 1 DF per day and stopped in mid-MAY 2012
     Route: 048
     Dates: end: 201205
  5. REMINYL [Concomitant]
     Dosage: 1 DF per day and stopped in mid MAY-2012
     Route: 048
     Dates: end: 201205

REACTIONS (2)
  - Meningitis tuberculous [Fatal]
  - Septic shock [Fatal]
